FAERS Safety Report 5744035-5 (Version None)
Quarter: 2008Q2

REPORT INFORMATION
  Report Type: 
  Country: None (occurrence: None)
  Receive Date: 20080516
  Receipt Date: 20080222
  Transmission Date: 20081010
  Serious: Yes (Life-Threatening, Hospitalization)
  Sender: FDA-Public Use
  Company Number: 2008AL003718

PATIENT
  Age: 68 Year
  Sex: Male

DRUGS (5)
  1. METFORMIN HYDROCHLORIDE [Suspect]
     Indication: DIABETES MELLITUS
     Dosage: 850 MG, BID; PO
     Route: 048
     Dates: end: 20080210
  2. HUMALOG [Concomitant]
  3. GABAPENTIN [Concomitant]
  4. VITAMIN B-12 [Concomitant]
  5. AMARYL [Concomitant]

REACTIONS (8)
  - CARDIO-RESPIRATORY ARREST [None]
  - DIARRHOEA [None]
  - HAEMODIALYSIS [None]
  - HYPERKALAEMIA [None]
  - LACTIC ACIDOSIS [None]
  - MALAISE [None]
  - RENAL FAILURE [None]
  - VOMITING [None]
